FAERS Safety Report 13032864 (Version 3)
Quarter: 2017Q1

REPORT INFORMATION
  Report Type: Spontaneous
  Country: US (occurrence: US)
  Receive Date: 20161215
  Receipt Date: 20170131
  Transmission Date: 20170428
  Serious: Yes (Death, Hospitalization)
  Sender: FDA-Public Use
  Company Number: US-UNITED THERAPEUTICS-UNT-2016-018662

PATIENT
  Age: 58 Year
  Sex: Female
  Weight: 90.25 kg

DRUGS (3)
  1. REMODULIN [Suspect]
     Active Substance: TREPROSTINIL
     Indication: PULMONARY HYPERTENSION
     Dosage: 0.050 ?G/KG, CONTINUING
     Route: 041
     Dates: start: 20140424
  2. REVATIO [Concomitant]
     Active Substance: SILDENAFIL CITRATE
     Indication: PRODUCT USED FOR UNKNOWN INDICATION
  3. TRACLEER [Concomitant]
     Active Substance: BOSENTAN
     Indication: PRODUCT USED FOR UNKNOWN INDICATION

REACTIONS (9)
  - Confusional state [Unknown]
  - Product leakage [Unknown]
  - Haemorrhage [Unknown]
  - Pneumonia [Unknown]
  - Device issue [Unknown]
  - Cardiac arrest [Fatal]
  - Asthenia [Unknown]
  - Panic attack [Unknown]
  - International normalised ratio increased [Unknown]

NARRATIVE: CASE EVENT DATE: 2016
